FAERS Safety Report 6684306-1 (Version None)
Quarter: 2010Q2

REPORT INFORMATION
  Report Type: 
  Country: None (occurrence: None)
  Receive Date: 20100416
  Receipt Date: 20100406
  Transmission Date: 20101027
  Serious: Yes (Hospitalization)
  Sender: FDA-Public Use
  Company Number: PHHY2010US22165

PATIENT
  Sex: Female

DRUGS (5)
  1. TEKTURNA [Suspect]
     Indication: HYPERTENSION
     Dosage: 150 MG, QD
     Route: 048
     Dates: start: 20080104, end: 20100104
  2. TEKTURNA [Suspect]
     Indication: VASODILATATION
  3. ATENOLOL [Concomitant]
  4. ISOSORBIDE DINITRATE [Concomitant]
  5. FUROSEMIDE [Concomitant]

REACTIONS (2)
  - ASTHMA [None]
  - BLOOD POTASSIUM INCREASED [None]
